FAERS Safety Report 22540471 (Version 1)
Quarter: 2023Q2

REPORT INFORMATION
  Report Type: Spontaneous
  Country: US (occurrence: None)
  Receive Date: 20230607
  Receipt Date: 20230607
  Transmission Date: 20230721
  Serious: Yes (Hospitalization)
  Sender: FDA-Public Use
  Company Number: None

PATIENT
  Sex: Female

DRUGS (1)
  1. XELODA [Suspect]
     Active Substance: CAPECITABINE
     Dosage: FREQUENCY : TWICE A DAY;?
     Route: 048

REACTIONS (8)
  - Nausea [None]
  - Vomiting [None]
  - Dehydration [None]
  - Diarrhoea [None]
  - Pneumonia [None]
  - Overdose [None]
  - Drug interaction [None]
  - Therapy cessation [None]
